FAERS Safety Report 18311602 (Version 1)
Quarter: 2020Q3

REPORT INFORMATION
  Report Type: Spontaneous
  Country: PL (occurrence: PL)
  Receive Date: 20200925
  Receipt Date: 20200925
  Transmission Date: 20201103
  Serious: Yes (Other)
  Sender: FDA-Public Use
  Company Number: PL-ACCORD-202667

PATIENT
  Age: 33 Year
  Sex: Female

DRUGS (7)
  1. ETOPOSIDE. [Suspect]
     Active Substance: ETOPOSIDE
     Indication: HODGKIN^S DISEASE
     Dosage: ESCALATED DOSES
     Dates: start: 201508, end: 201509
  2. CYCLOPHOSPHAMIDE/CYCLOPHOSPHAMIDE MONOHYDRATE [Suspect]
     Active Substance: CYCLOPHOSPHAMIDE
     Indication: HODGKIN^S DISEASE
     Dosage: ESCALATED DOSES
     Dates: start: 201508, end: 201509
  3. VINCRISTINE [Suspect]
     Active Substance: VINCRISTINE
     Indication: HODGKIN^S DISEASE
     Dosage: ESCALATED DOSES
     Dates: start: 201508, end: 201509
  4. PREDNISONE/PREDNISONE ACETATE [Suspect]
     Active Substance: PREDNISONE ACETATE
     Indication: HODGKIN^S DISEASE
     Dates: start: 201508, end: 201509
  5. DOXORUBICIN [Suspect]
     Active Substance: DOXORUBICIN
     Indication: HODGKIN^S DISEASE
     Dosage: ESCALATED DOSES
     Dates: start: 201508, end: 201509
  6. BLEOMYCIN [Suspect]
     Active Substance: BLEOMYCIN SULFATE
     Indication: HODGKIN^S DISEASE
     Dosage: ESCALATED DOSES
     Dates: start: 201508, end: 201509
  7. PROCARBAZINE [Suspect]
     Active Substance: PROCARBAZINE
     Indication: HODGKIN^S DISEASE
     Dosage: ESCALATED DOSES
     Dates: start: 201508, end: 201509

REACTIONS (2)
  - Pancytopenia [Unknown]
  - Infection [Unknown]

NARRATIVE: CASE EVENT DATE: 2015
